FAERS Safety Report 20127428 (Version 1)
Quarter: 2021Q4

REPORT INFORMATION
  Report Type: Other
  Country: None (occurrence: US)
  Receive Date: 20211129
  Receipt Date: 20211129
  Transmission Date: 20220304
  Serious: Yes (Hospitalization)
  Sender: FDA-Public Use
  Company Number: US-B.Braun Medical Inc.-2122445

PATIENT
  Age: 45 Year
  Sex: Male

DRUGS (1)
  1. ACETAMINOPHEN [Suspect]
     Active Substance: ACETAMINOPHEN

REACTIONS (6)
  - Vomiting [Recovered/Resolved]
  - Aspartate aminotransferase increased [Recovered/Resolved]
  - Overdose [Recovered/Resolved]
  - Encephalopathy [Recovered/Resolved]
  - Metabolic acidosis [Recovered/Resolved]
  - Respiratory acidosis [Recovered/Resolved]
